FAERS Safety Report 9274994 (Version 1)
Quarter: 2013Q2

REPORT INFORMATION
  Report Type: Spontaneous
  Country: DE (occurrence: DE)
  Receive Date: 20130507
  Receipt Date: 20130507
  Transmission Date: 20140414
  Serious: Yes (Other)
  Sender: FDA-Public Use
  Company Number: DE-ELI_LILLY_AND_COMPANY-DE201304008294

PATIENT
  Sex: Male

DRUGS (4)
  1. HUMINSULIN NPH [Suspect]
     Indication: DIABETES MELLITUS
     Dosage: UNK, PRN
     Route: 058
  2. HUMINSULIN REGULAR [Suspect]
     Indication: DIABETES MELLITUS
     Dosage: UNK, PRN
     Route: 058
  3. HUMALOG LISPRO [Suspect]
     Indication: DIABETES MELLITUS
     Dosage: UNK, PRN
     Route: 058
  4. RAMIPRIL [Concomitant]
     Indication: HYPERTENSION

REACTIONS (4)
  - Concussion [Unknown]
  - Fall [Recovered/Resolved]
  - Cognitive disorder [Unknown]
  - Memory impairment [Recovering/Resolving]
